FAERS Safety Report 4470677-3 (Version None)
Quarter: 2004Q4

REPORT INFORMATION
  Report Type: 
  Country: None (occurrence: None)
  Receive Date: 20041006
  Receipt Date: 20041006
  Transmission Date: 20050328
  Serious: Yes (Other)
  Sender: FDA-Public Use
  Company Number: None

PATIENT
  Age: 47 Year
  Sex: Male
  Weight: 70.3075 kg

DRUGS (2)
  1. BUPROPION HCL  150SR  WATSON PHARMACEUTICALS [Suspect]
     Indication: DEPRESSION
     Dosage: 1   DAILY
     Dates: start: 20040901, end: 20040915
  2. BUPROPION HCL  150SR  WATSON PHARMACEUTICALS [Suspect]
     Indication: DEPRESSION
     Dosage: 1   DAILY
     Dates: start: 20041001, end: 20041003

REACTIONS (5)
  - FEELING ABNORMAL [None]
  - HEADACHE [None]
  - HEART RATE INCREASED [None]
  - PHARMACEUTICAL PRODUCT COMPLAINT [None]
  - SEDATION [None]
